FAERS Safety Report 7048949-8 (Version None)
Quarter: 2010Q4

REPORT INFORMATION
  Report Type: 
  Country: None (occurrence: None)
  Receive Date: 20101001
  Receipt Date: 20100930
  Transmission Date: 20110411
  Serious: Yes (Congenital Anomaly)
  Sender: FDA-Public Use
  Company Number: 2010MA003148

PATIENT
  Sex: Male
  Weight: 2.8 kg

DRUGS (3)
  1. CARBAMAZEPINE [Suspect]
     Indication: DRUG EXPOSURE DURING PREGNANCY
     Dosage: 200 MG;BID;TRPL
     Route: 064
  2. CON MEDS [Concomitant]
  3. PREV MEDS [Concomitant]

REACTIONS (7)
  - CHOANAL ATRESIA [None]
  - CRANIOFACIAL DYSOSTOSIS [None]
  - FINGER HYPOPLASIA [None]
  - JOINT DISLOCATION [None]
  - LIMB HYPOPLASIA CONGENITAL [None]
  - MATERNAL DRUGS AFFECTING FOETUS [None]
  - SKIN PAPILLOMA [None]
